FAERS Safety Report 5320925-2 (Version None)
Quarter: 2007Q2

REPORT INFORMATION
  Report Type: 
  Country: None (occurrence: None)
  Receive Date: 20070504
  Receipt Date: 20070424
  Transmission Date: 20071010
  Serious: No
  Sender: FDA-Public Use
  Company Number: 2007-157722-NL

PATIENT
  Age: 29 Year
  Sex: Female

DRUGS (2)
  1. NUVARING [Suspect]
     Indication: CONTRACEPTION
     Dosage: DF; VAGINAL
     Route: 067
     Dates: start: 20060501, end: 20060701
  2. SUMATRIPTAN SUCCINATE [Concomitant]

REACTIONS (1)
  - OVARIAN CYST [None]
